FAERS Safety Report 10885448 (Version 3)
Quarter: 2015Q3

REPORT INFORMATION
  Report Type: Spontaneous
  Country: BR (occurrence: BR)
  Receive Date: 20150304
  Receipt Date: 20150706
  Transmission Date: 20151125
  Serious: Yes (Hospitalization, Other)
  Sender: FDA-Public Use
  Company Number: BR-PFIZER INC-2015074913

PATIENT
  Age: 48 Year
  Sex: Male
  Weight: 93 kg

DRUGS (12)
  1. CELEBRA [Suspect]
     Active Substance: CELECOXIB
     Indication: TENDON DISORDER
     Dosage: 200MG (1 TABLET) EVERY 12 HOURS
     Route: 048
     Dates: start: 2005
  2. CENTRUM SELECT [Concomitant]
     Active Substance: VITAMINS
     Indication: VITAMIN SUPPLEMENTATION
     Dosage: UNK
     Dates: start: 2004
  3. NIMESULIDE [Concomitant]
     Active Substance: NIMESULIDE
     Dosage: 1 TABLET OR CAPSULE TWICE DAILY
     Dates: start: 2013
  4. PANTOCAL [Concomitant]
     Dosage: UNK
     Dates: start: 2005
  5. AAS [Concomitant]
     Active Substance: ASPIRIN
     Indication: BLOOD THROMBIN ABNORMAL
     Dosage: 1 TABLET OR CAPSULE TWICE DAILY
     Dates: start: 2009
  6. ATENOLOL. [Concomitant]
     Active Substance: ATENOLOL
     Indication: BLOOD PRESSURE ABNORMAL
     Dosage: 1 TABLET OR CAPSULE TWICE DAILY
     Dates: start: 2009
  7. CELEBRA [Suspect]
     Active Substance: CELECOXIB
     Indication: LIMB INJURY
  8. NORIPURUM [Concomitant]
     Active Substance: IRON POLYMALTOSE
     Dosage: UNSPECIFIED DOSE, ONCE A YEAR
  9. CELEBRA [Suspect]
     Active Substance: CELECOXIB
     Indication: SPINAL PAIN
     Dosage: 1 TABLET (AS REPORTED) EVERY 12 HOURS
     Dates: start: 2015, end: 2015
  10. DICLOFENAC POTASSIUM. [Concomitant]
     Active Substance: DICLOFENAC POTASSIUM
     Dosage: 1 TABLET OR CAPSULE ONCE DAILY, AS NEEDED
     Dates: start: 2005
  11. OSCAL D [Concomitant]
     Active Substance: CALCIUM CARBONATE\CHOLECALCIFEROL
     Dosage: UNSPECIFIED DOSE, CYCLIC (BEING USED FOR A TIME, THEN STAYING 2/3 MONTHS WITHOUT USING IT)
  12. OMEPRAZOLE. [Concomitant]
     Active Substance: OMEPRAZOLE
     Indication: ABDOMINAL DISCOMFORT
     Dosage: 1 TABLET OR CAPSULE ONCE DAILY IN THE MORNING
     Dates: start: 2005

REACTIONS (8)
  - Spinal osteoarthritis [Not Recovered/Not Resolved]
  - Drug ineffective [Unknown]
  - Tendon injury [Not Recovered/Not Resolved]
  - Vision blurred [Unknown]
  - Hernia [Recovered/Resolved]
  - Road traffic accident [Recovered/Resolved]
  - Scoliosis [Not Recovered/Not Resolved]
  - Megacolon [Not Recovered/Not Resolved]

NARRATIVE: CASE EVENT DATE: 200705
